FAERS Safety Report 6304255-8 (Version None)
Quarter: 2009Q3

REPORT INFORMATION
  Report Type: 
  Country: None (occurrence: None)
  Receive Date: 20090811
  Receipt Date: 20090806
  Transmission Date: 20100115
  Serious: Yes (Hospitalization)
  Sender: FDA-Public Use
  Company Number: US-TEVA-205060USA

PATIENT
  Age: 13 Year
  Sex: Female

DRUGS (1)
  1. SALBUTAMOL SULFATE INHALATION, 0.09 MG [Suspect]
     Indication: UPPER RESPIRATORY TRACT INFECTION
     Route: 055

REACTIONS (1)
  - PNEUMONIA [None]
